FAERS Safety Report 7374999-8 (Version None)
Quarter: 2011Q1

REPORT INFORMATION
  Report Type: 
  Country: None (occurrence: None)
  Receive Date: 20110325
  Receipt Date: 20110314
  Transmission Date: 20110831
  Serious: Yes (Hospitalization)
  Sender: FDA-Public Use
  Company Number: PHHY2011AT08011

PATIENT
  Sex: Female
  Weight: 80 kg

DRUGS (3)
  1. EXELON [Suspect]
     Dosage: 4.6 MG / 24H
     Route: 062
     Dates: start: 20101222
  2. EXELON [Suspect]
     Indication: DEMENTIA
     Dosage: 4.6 MG / 24H
     Route: 062
     Dates: start: 20101011, end: 20101017
  3. EXELON [Suspect]
     Dosage: 9.5 MG / 24H
     Route: 062
     Dates: start: 20101218

REACTIONS (5)
  - DISTURBANCE IN ATTENTION [None]
  - SPEECH DISORDER [None]
  - COGNITIVE DISORDER [None]
  - VENOUS THROMBOSIS LIMB [None]
  - CONFUSIONAL STATE [None]
